FAERS Safety Report 7085408-0 (Version None)
Quarter: 2010Q4

REPORT INFORMATION
  Report Type: 
  Country: None (occurrence: None)
  Receive Date: 20101105
  Receipt Date: 20101102
  Transmission Date: 20110411
  Serious: Yes (Other)
  Sender: FDA-Public Use
  Company Number: NL-PFIZER INC-2010135061

PATIENT
  Age: 71 Year
  Sex: Male
  Weight: 78 kg

DRUGS (4)
  1. VIAGRA [Suspect]
     Indication: ERECTILE DYSFUNCTION
     Dosage: 50 MG, AS NEEDED
     Route: 048
  2. ACETYLSALICYLIC ACID [Concomitant]
     Indication: ARRHYTHMIA
     Dosage: UNK MG, 1X/DAY
     Route: 048
     Dates: start: 20010101
  3. FLECAINIDE [Concomitant]
     Indication: ARRHYTHMIA
     Dosage: UNK
     Route: 048
     Dates: start: 20010101
  4. METOPROLOL TARTRATE [Concomitant]
     Indication: ARRHYTHMIA
     Dosage: UNK
     Route: 048
     Dates: start: 20010101

REACTIONS (1)
  - SUNBURN [None]
